FAERS Safety Report 4852694-4 (Version None)
Quarter: 2005Q4

REPORT INFORMATION
  Report Type: 
  Country: None (occurrence: None)
  Receive Date: 20051213
  Receipt Date: 20051205
  Transmission Date: 20060501
  Serious: Yes (Hospitalization)
  Sender: FDA-Public Use
  Company Number: FR-MERCK-0512FRA00019

PATIENT
  Age: 81 Year
  Sex: Female

DRUGS (11)
  1. FOSAMAX [Suspect]
     Indication: OSTEOPOROSIS
     Route: 048
     Dates: end: 20050606
  2. TENOXICAM [Suspect]
     Indication: POLYARTHRITIS
     Route: 048
     Dates: end: 20050606
  3. PREDNISONE [Concomitant]
     Indication: POLYARTHRITIS
     Route: 048
  4. DIOSMIN AND HESPERIDIN [Concomitant]
     Indication: VENOUS INSUFFICIENCY
     Route: 048
     Dates: end: 20050606
  5. METHOTREXATE [Concomitant]
     Indication: POLYARTHRITIS
     Route: 048
  6. LANSOPRAZOLE [Concomitant]
     Indication: PROPHYLAXIS AGAINST GASTROINTESTINAL ULCER
     Route: 048
     Dates: end: 20050606
  7. LANSOPRAZOLE [Concomitant]
     Route: 048
  8. TETRAZEPAM [Concomitant]
     Route: 048
  9. TRAMADOL HYDROCHLORIDE [Concomitant]
     Indication: POLYARTHRITIS
     Route: 048
  10. AMIODARONE HYDROCHLORIDE [Concomitant]
     Indication: ARRHYTHMIA PROPHYLAXIS
     Route: 048
  11. ACETAMINOPHEN [Concomitant]
     Indication: POLYARTHRITIS
     Route: 048

REACTIONS (7)
  - C-REACTIVE PROTEIN INCREASED [None]
  - DIVERTICULUM INTESTINAL [None]
  - GASTRITIS [None]
  - GASTROINTESTINAL HYPOMOTILITY [None]
  - HIATUS HERNIA [None]
  - MELAENA [None]
  - RECTAL HAEMORRHAGE [None]
